FAERS Safety Report 4789680-9 (Version None)
Quarter: 2005Q4

REPORT INFORMATION
  Report Type: 
  Country: None (occurrence: None)
  Receive Date: 20051004
  Receipt Date: 20050927
  Transmission Date: 20060501
  Serious: Yes (Life-Threatening, Hospitalization)
  Sender: FDA-Public Use
  Company Number: 2005-02017

PATIENT
  Age: 56 Year
  Sex: Female
  Weight: 65.9 kg

DRUGS (1)
  1. VELCADE [Suspect]
     Indication: MANTLE CELL LYMPHOMA
     Dosage: 1.20 MG, INTRAVENOUS
     Route: 042
     Dates: start: 20050329, end: 20050916

REACTIONS (16)
  - BILE DUCT STONE [None]
  - BILIARY DILATATION [None]
  - BLOOD PHOSPHORUS INCREASED [None]
  - CHOLECYSTITIS ACUTE [None]
  - CHOLECYSTITIS INFECTIVE [None]
  - CHOLELITHIASIS [None]
  - CHRONIC HEPATITIS [None]
  - GALLBLADDER POLYP [None]
  - HEPATIC CIRRHOSIS [None]
  - HEPATIC STEATOSIS [None]
  - LEUKOCYTOSIS [None]
  - LYMPHOCYTE PERCENTAGE DECREASED [None]
  - NEPHROLITHIASIS [None]
  - NEUROPATHY PERIPHERAL [None]
  - NEUTROPHIL PERCENTAGE INCREASED [None]
  - PAIN [None]
